FAERS Safety Report 23100162 (Version 1)
Quarter: 2023Q4

REPORT INFORMATION
  Report Type: Other
  Country: US (occurrence: US)
  Receive Date: 20231024
  Receipt Date: 20231024
  Transmission Date: 20240110
  Serious: Yes (Hospitalization)
  Sender: FDA-Public Use
  Company Number: US-C B Fleet Co Inc-202310-US-003175

PATIENT
  Age: 68 Year
  Sex: Female

DRUGS (1)
  1. DIPHENHYDRAMINE HYDROCHLORIDE [Suspect]
     Active Substance: DIPHENHYDRAMINE HYDROCHLORIDE
     Indication: Intentional overdose
     Dosage: TOOK A HANDFUL
     Route: 048

REACTIONS (2)
  - Toxicity to various agents [Recovered/Resolved]
  - Intentional overdose [None]
